FAERS Safety Report 4690600-6 (Version None)
Quarter: 2005Q2

REPORT INFORMATION
  Report Type: 
  Country: None (occurrence: None)
  Receive Date: 20050615
  Receipt Date: 20050602
  Transmission Date: 20051028
  Serious: Yes (Other)
  Sender: FDA-Public Use
  Company Number: DE-JNJFOC-20050405182

PATIENT
  Sex: Female
  Weight: 59.4 kg

DRUGS (1)
  1. RISPERDAL [Suspect]
     Route: 049
     Dates: start: 20050210, end: 20050418

REACTIONS (1)
  - PLATELET COUNT DECREASED [None]
